FAERS Safety Report 5013818-1 (Version None)
Quarter: 2006Q2

REPORT INFORMATION
  Report Type: 
  Country: None (occurrence: None)
  Receive Date: 20060530
  Receipt Date: 20060125
  Transmission Date: 20061013
  Serious: Yes (Hospitalization)
  Sender: FDA-Public Use
  Company Number: JP-ROCHE-434164

PATIENT
  Age: 46 Year
  Sex: Female

DRUGS (2)
  1. TAMIFLU [Suspect]
     Indication: INFLUENZA
     Route: 048
     Dates: start: 20050315, end: 20050315
  2. TAMIFLU [Suspect]
     Route: 048
     Dates: start: 20060515, end: 20060515

REACTIONS (2)
  - AUTOIMMUNE HEPATITIS [None]
  - IDIOPATHIC THROMBOCYTOPENIC PURPURA [None]
